FAERS Safety Report 8100356-2 (Version None)
Quarter: 2012Q1

REPORT INFORMATION
  Report Type: 
  Country: None (occurrence: None)
  Receive Date: 20120129
  Receipt Date: 20111128
  Transmission Date: 20120608
  Serious: No
  Sender: FDA-Public Use
  Company Number: US-ABBOTT-11P-163-0878013-00

PATIENT
  Age: 69 Year
  Sex: Female

DRUGS (3)
  1. GLUCOPHAGE [Concomitant]
     Indication: PRODUCT USED FOR UNKNOWN INDICATION
  2. LISINOPRIL [Concomitant]
     Indication: HYPERTENSION
  3. HUMIRA [Suspect]
     Indication: PSORIASIS
     Dates: start: 20080101

REACTIONS (4)
  - DYSURIA [None]
  - ANORECTAL DISCOMFORT [None]
  - FUNGAL INFECTION [None]
  - GASTROENTERITIS BACTERIAL [None]
